FAERS Safety Report 15623882 (Version 4)
Quarter: 2019Q1

REPORT INFORMATION
  Report Type: Report from Study
  Country: US (occurrence: US)
  Receive Date: 20181115
  Receipt Date: 20190206
  Transmission Date: 20190417
  Serious: Yes (Hospitalization)
  Sender: FDA-Public Use
  Company Number: US-ROCHE-2215514

PATIENT
  Age: 63 Year
  Sex: Female
  Weight: 55.9 kg

DRUGS (23)
  1. LENALIDOMIDE [Suspect]
     Active Substance: LENALIDOMIDE
     Indication: LYMPHOMA
     Dosage: FOR 21 DAYS
     Route: 048
  2. VITAMIN D3 [Concomitant]
     Active Substance: CHOLECALCIFEROL
     Route: 048
  3. TIROSINT [Concomitant]
     Active Substance: LEVOTHYROXINE SODIUM
     Route: 048
  4. FLUTICASONE. [Concomitant]
     Active Substance: FLUTICASONE
     Dosage: 137-50 MCG/SPRAY
     Route: 065
     Dates: start: 20190107
  5. SYNTHROID [Concomitant]
     Active Substance: LEVOTHYROXINE SODIUM
     Indication: HYPOTHYROIDISM
     Route: 065
  6. OBINUTUZUMAB. [Suspect]
     Active Substance: OBINUTUZUMAB
     Indication: LYMPHOMA
     Dosage: ON DAYS 1, 8, 15, AND 22 OF CYCLE 1 AND DAY 1 OF CYCLES 2-6 (1 CYCLE=28 DAYS).
     Route: 042
  7. HEPARIN LOCK FLUSH [Concomitant]
     Active Substance: HEPARIN SODIUM
     Dosage: 500 UNITS
     Route: 065
  8. FIORICET [Concomitant]
     Active Substance: ACETAMINOPHEN\BUTALBITAL\CAFFEINE
     Dosage: 1 TABLET GIVEN AT 11/JAN/2019 (18:00)
     Route: 048
  9. MAGNESIUM SULFATE. [Concomitant]
     Active Substance: MAGNESIUM SULFATE
     Dosage: GIVEN ON 14/JAN/2019 AT 08:35, 25 ML/HR
     Route: 065
  10. SODIUM CHLORIDE. [Concomitant]
     Active Substance: SODIUM CHLORIDE
     Route: 065
  11. LEVAQUIN [Concomitant]
     Active Substance: LEVOFLOXACIN
     Dosage: GIVEN AT 11/JAN/2019, 05:30 - 100 ML/HR
     Route: 042
  12. SODIUM CHLORIDE. [Concomitant]
     Active Substance: SODIUM CHLORIDE
     Route: 042
  13. AZELASTINE. [Concomitant]
     Active Substance: AZELASTINE HYDROCHLORIDE
     Dosage: 137-50 MCG/SPRAY
     Route: 065
     Dates: start: 20190107
  14. TIROSINT [Concomitant]
     Active Substance: LEVOTHYROXINE SODIUM
     Route: 048
  15. ZOMIG [Concomitant]
     Active Substance: ZOLMITRIPTAN
     Route: 048
  16. ISOVUE 370 [Concomitant]
     Active Substance: IOPAMIDOL
     Dosage: GIVEN AT 10/JAN/2019 20:50
     Route: 042
  17. REVLIMID [Suspect]
     Active Substance: LENALIDOMIDE
     Indication: PRODUCT USED FOR UNKNOWN INDICATION
     Dosage: DAYS 1-21 (DOSE REDUCTION FROM 20MG) SECONDARY GRADE 3 RASH
     Route: 065
  18. TYLENOL [Concomitant]
     Active Substance: ACETAMINOPHEN
     Dosage: 650 MG
     Route: 065
     Dates: start: 20181106
  19. FLONASE [Concomitant]
     Active Substance: FLUTICASONE PROPIONATE
     Route: 045
  20. LOVENOX 40 [Concomitant]
     Indication: DEEP VEIN THROMBOSIS
     Route: 065
  21. MORPHINE [Concomitant]
     Active Substance: MORPHINE
     Dosage: GIVEN ON 10/JAN/2019 AT 19:57 AND 23:19
     Route: 065
  22. ZOFRAN [Concomitant]
     Active Substance: ONDANSETRON HYDROCHLORIDE
     Dosage: GIVEN ON 10/JAN/2019 AT 19:58
     Route: 065
  23. PEPCID (UNITED STATES) [Concomitant]
     Route: 065

REACTIONS (2)
  - Sepsis [Recovered/Resolved]
  - Appendicitis [Recovered/Resolved with Sequelae]

NARRATIVE: CASE EVENT DATE: 20181108
